FAERS Safety Report 25928657 (Version 1)
Quarter: 2025Q4

REPORT INFORMATION
  Report Type: Spontaneous
  Country: EU (occurrence: EU)
  Receive Date: 20251016
  Receipt Date: 20251016
  Transmission Date: 20260117
  Serious: Yes (Life-Threatening)
  Sender: TEVA
  Company Number: None

PATIENT
  Age: 44 Year
  Sex: Male

DRUGS (1)
  1. CLOZAPINE [Suspect]
     Active Substance: CLOZAPINE
     Indication: Product used for unknown indication
     Route: 065
     Dates: start: 20250719

REACTIONS (2)
  - Pneumonia aspiration [Recovered/Resolved]
  - Prescribed overdose [Recovered/Resolved]

NARRATIVE: CASE EVENT DATE: 20250719
